FAERS Safety Report 23884665 (Version 2)
Quarter: 2024Q2

REPORT INFORMATION
  Report Type: Spontaneous
  Country: ES (occurrence: ES)
  Receive Date: 20240522
  Receipt Date: 20240528
  Transmission Date: 20240716
  Serious: Yes (Hospitalization, Other)
  Sender: FDA-Public Use
  Company Number: ES-ROCHE-3547012

PATIENT
  Age: 60 Year
  Sex: Male
  Weight: 77 kg

DRUGS (26)
  1. CARBOPLATIN [Suspect]
     Active Substance: CARBOPLATIN
     Indication: Non-small cell lung cancer metastatic
     Dosage: 610 MG, EVERY 3 WEEKS
     Route: 042
     Dates: start: 20230615
  2. CARBOPLATIN [Suspect]
     Active Substance: CARBOPLATIN
     Dosage: 645 MG, EVERY 3 WEEKS
     Route: 042
     Dates: start: 20230817
  3. PEMETREXED [Suspect]
     Active Substance: PEMETREXED
     Indication: Non-small cell lung cancer metastatic
     Dosage: 995 MG, EVERY 3 WEEKS
     Route: 042
     Dates: start: 20230615
  4. PEMETREXED [Suspect]
     Active Substance: PEMETREXED
     Dosage: 1000 MG
     Route: 042
     Dates: start: 20240411
  5. ACETAMINOPHEN [Concomitant]
     Active Substance: ACETAMINOPHEN
     Dosage: 1 G
     Dates: start: 20230816
  6. FOLIC ACID [Concomitant]
     Active Substance: FOLIC ACID
     Dosage: 5 MG, 1X/DAY
     Dates: start: 20230523
  7. ALBUTEROL [Concomitant]
     Active Substance: ALBUTEROL
     Indication: Oropharyngeal pain
     Dosage: PUFF
     Dates: start: 20240313
  8. NICOTINE [Concomitant]
     Active Substance: NICOTINE
     Dosage: 1 MG (0.5 DAY)
     Dates: start: 20230810
  9. CETIRIZINE [Concomitant]
     Active Substance: CETIRIZINE HYDROCHLORIDE
     Indication: Oropharyngeal pain
     Dosage: 10 MG, 1X/DAY
     Dates: start: 20240313
  10. PEMBROLIZUMAB [Concomitant]
     Active Substance: PEMBROLIZUMAB
     Indication: Non-small cell lung cancer metastatic
     Dosage: UNK, EVERY 3 WEEKS
     Dates: start: 20230615
  11. PEMBROLIZUMAB [Concomitant]
     Active Substance: PEMBROLIZUMAB
     Dosage: UNK, EVERY 3 WEEKS
     Dates: start: 20240411
  12. ONDANSETRON [Concomitant]
     Active Substance: ONDANSETRON
     Dosage: 8 MG, EVERY 3 WEEKS
     Dates: start: 20230615
  13. TIRAGOLUMAB [Concomitant]
     Active Substance: TIRAGOLUMAB
     Indication: Non-small cell lung cancer metastatic
     Dosage: UNK, EVERY 3 WEEKS
     Dates: start: 20230615
  14. TIRAGOLUMAB [Concomitant]
     Active Substance: TIRAGOLUMAB
     Dosage: UNK, EVERY 3 WEEKS
     Dates: start: 20240411
  15. CLAVULANIC ACID [Concomitant]
     Active Substance: CLAVULANIC ACID
     Dosage: 125 MG, 3X/DAY
     Dates: start: 20240402, end: 20240402
  16. AMOXICILLIN [Concomitant]
     Active Substance: AMOXICILLIN
     Dosage: 875 MG, 3X/DAY
     Dates: start: 20240402, end: 20240402
  17. VILANTEROL [Concomitant]
     Active Substance: VILANTEROL
     Indication: Chronic obstructive pulmonary disease
     Dosage: 55 UG, 1X/DAY
     Dates: start: 20230530
  18. PREDNISONE [Concomitant]
     Active Substance: PREDNISONE
     Indication: Bronchospasm
     Dosage: 20 MG, 1X/DAY
     Dates: start: 20240406, end: 20240408
  19. PREDNISONE [Concomitant]
     Active Substance: PREDNISONE
     Dosage: 30 MG, 1X/DAY
     Dates: start: 20240403, end: 20240405
  20. PREDNISONE [Concomitant]
     Active Substance: PREDNISONE
     Dosage: 10 MG, 1X/DAY
     Dates: start: 20240409
  21. IPRATROPIUM BROMIDE [Concomitant]
     Active Substance: IPRATROPIUM BROMIDE\IPRATROPIUM BROMIDE ANHYDROUS
     Indication: Bronchospasm
     Dosage: 2 DF, 3X/DAY
     Dates: start: 20240402
  22. AMOXICILLIN [Concomitant]
     Active Substance: AMOXICILLIN
     Dosage: 500 MG, 3X/DAY
     Dates: start: 20240403, end: 20240409
  23. UMECLIDINIUM [Concomitant]
     Active Substance: UMECLIDINIUM
     Indication: Chronic obstructive pulmonary disease
     Dosage: 22 UG, 1X/DAY
     Dates: start: 20230530
  24. DEXAMETHASONE [Concomitant]
     Active Substance: DEXAMETHASONE
     Dosage: 12 MG, EVERY 3 WEEKS
     Dates: start: 20230615
  25. ATEZOLIZUMAB [Concomitant]
     Active Substance: ATEZOLIZUMAB
     Indication: Non-small cell lung cancer metastatic
     Dosage: UNK, EVERY 3 WEEKS
     Dates: start: 20230615
  26. ATEZOLIZUMAB [Concomitant]
     Active Substance: ATEZOLIZUMAB
     Dosage: UNK, EVERY 3 WEEKS
     Dates: start: 20240411

REACTIONS (3)
  - Respiratory tract infection [Recovered/Resolved]
  - Atelectasis [Unknown]
  - Off label use [Unknown]

NARRATIVE: CASE EVENT DATE: 20230615
